FAERS Safety Report 6599775-5 (Version None)
Quarter: 2010Q1

REPORT INFORMATION
  Report Type: 
  Country: None (occurrence: None)
  Receive Date: 20100224
  Receipt Date: 20100215
  Transmission Date: 20100710
  Serious: Yes (Other)
  Sender: FDA-Public Use
  Company Number: PHEH2008US00987

PATIENT
  Sex: Female

DRUGS (7)
  1. AREDIA [Suspect]
  2. ZOMETA [Suspect]
  3. CHEMOTHERAPEUTICS NOS [Concomitant]
  4. DOXIL [Concomitant]
  5. NEXIUM [Concomitant]
  6. COREG [Concomitant]
  7. ALTACE [Concomitant]

REACTIONS (14)
  - ANHEDONIA [None]
  - ANXIETY [None]
  - DERMAL CYST [None]
  - DISABILITY [None]
  - DYSPNOEA [None]
  - INFECTION [None]
  - INJURY [None]
  - OSTEONECROSIS [None]
  - PAIN [None]
  - PLEURODESIS [None]
  - PNEUMOTHORAX [None]
  - THORACOSTOMY [None]
  - TOOTH EXTRACTION [None]
  - TRAUMATIC LUNG INJURY [None]
